FAERS Safety Report 13082796 (Version 1)
Quarter: 2017Q1

REPORT INFORMATION
  Report Type: Spontaneous
  Country: US (occurrence: US)
  Receive Date: 20170103
  Receipt Date: 20170103
  Transmission Date: 20170428
  Serious: Yes (Disabling, Other)
  Sender: FDA-Public Use
  Company Number: PHHY2016US179524

PATIENT
  Age: 61 Year
  Sex: Male

DRUGS (2)
  1. MIDODRINE [Suspect]
     Active Substance: MIDODRINE
     Indication: SYNCOPE
     Route: 065
  2. FLUDROCORTISONE [Concomitant]
     Active Substance: FLUDROCORTISONE
     Indication: BLOOD PRESSURE INCREASED
     Route: 065

REACTIONS (2)
  - Drug effect decreased [Unknown]
  - Mobility decreased [Unknown]
